FAERS Safety Report 6555301-8 (Version None)
Quarter: 2010Q1

REPORT INFORMATION
  Report Type: 
  Country: None (occurrence: None)
  Receive Date: 20100128
  Receipt Date: 20090402
  Transmission Date: 20100710
  Serious: No
  Sender: FDA-Public Use
  Company Number: A0778004A

PATIENT
  Age: 60 Year
  Sex: Female
  Weight: 72.7 kg

DRUGS (7)
  1. WELLBUTRIN [Suspect]
     Indication: ANTIDEPRESSANT THERAPY
  2. TOPAMAX [Suspect]
     Indication: MIGRAINE
     Dosage: 50MG TWICE PER DAY
     Route: 048
     Dates: start: 20080601
  3. PREVACID [Concomitant]
  4. ADVAIR HFA [Concomitant]
     Indication: ASTHMA
  5. PERCOCET [Concomitant]
     Indication: PAIN
  6. ASPIRIN [Concomitant]
     Indication: THROMBOSIS PROPHYLAXIS
  7. CALCIUM [Concomitant]
     Indication: SUPPLEMENTATION THERAPY

REACTIONS (1)
  - MIGRAINE [None]
